FAERS Safety Report 4576497-3 (Version None)
Quarter: 2005Q1

REPORT INFORMATION
  Report Type: 
  Country: None (occurrence: None)
  Receive Date: 20050207
  Receipt Date: 20050124
  Transmission Date: 20050727
  Serious: No
  Sender: FDA-Public Use
  Company Number: 2004UW24192

PATIENT
  Age: 49 Year
  Sex: Male
  Weight: 73.0291 kg

DRUGS (1)
  1. CRESTOR [Suspect]
     Dates: end: 20041202

REACTIONS (2)
  - BLOOD CHOLESTEROL INCREASED [None]
  - BLOOD TRIGLYCERIDES INCREASED [None]
